FAERS Safety Report 19976667 (Version 1)
Quarter: 2021Q4

REPORT INFORMATION
  Report Type: Spontaneous
  Country: BG (occurrence: BG)
  Receive Date: 20211020
  Receipt Date: 20211020
  Transmission Date: 20220303
  Serious: Yes (Hospitalization)
  Sender: FDA-Public Use
  Company Number: BG-009507513-2110BGR003831

PATIENT
  Age: 63 Year
  Sex: Male

DRUGS (1)
  1. PEMBROLIZUMAB [Suspect]
     Active Substance: PEMBROLIZUMAB
     Indication: Squamous cell carcinoma of lung
     Dosage: UNK
     Dates: end: 202012

REACTIONS (8)
  - Haemangioma [Unknown]
  - Enzyme activity increased [Recovering/Resolving]
  - Abdominal discomfort [Unknown]
  - Asthenia [Unknown]
  - Dyspnoea [Unknown]
  - General physical health deterioration [Unknown]
  - C-reactive protein increased [Recovering/Resolving]
  - Skin turgor decreased [Unknown]
